FAERS Safety Report 7009179-9 (Version None)
Quarter: 2010Q3

REPORT INFORMATION
  Report Type: 
  Country: None (occurrence: None)
  Receive Date: 20100923
  Receipt Date: 20100916
  Transmission Date: 20110219
  Serious: Yes (Other)
  Sender: FDA-Public Use
  Company Number: US-JNJFOC-20100906362

PATIENT
  Sex: Female

DRUGS (1)
  1. ORTHO TRI-CYCLEN [Suspect]
     Indication: MENOPAUSE
     Route: 048

REACTIONS (3)
  - BACK PAIN [None]
  - CHEST PAIN [None]
  - OFF LABEL USE [None]
